FAERS Safety Report 12883718 (Version 1)
Quarter: 2016Q4

REPORT INFORMATION
  Report Type: Spontaneous
  Country: US (occurrence: US)
  Receive Date: 20161026
  Receipt Date: 20161026
  Transmission Date: 20170207
  Serious: No
  Sender: FDA-Public Use
  Company Number: US-TORRENT-00000008

PATIENT
  Sex: Female
  Weight: 99 kg

DRUGS (7)
  1. HYDROCHLOROTHIAZIDE 25 MG [Concomitant]
     Active Substance: HYDROCHLOROTHIAZIDE
     Indication: FLUID RETENTION
     Route: 048
     Dates: start: 20101228, end: 20110823
  2. ZOLPIDEM TARTRATE. [Suspect]
     Active Substance: ZOLPIDEM TARTRATE
     Indication: INSOMNIA
     Dosage: ONE TABLET AT NIGHT
     Route: 048
     Dates: start: 20110722, end: 20110819
  3. FUROSEMIDE 20 MG [Concomitant]
     Active Substance: FUROSEMIDE
     Indication: FLUID RETENTION
     Route: 048
     Dates: start: 20110905
  4. GENERIC CLARITIN [Concomitant]
     Active Substance: LORATADINE
  5. TRIAMTERENE AND HYDROCHLOROTHIAZIDE 37.5/25 MG [Concomitant]
     Indication: FLUID RETENTION
     Route: 048
     Dates: start: 2000, end: 20101228
  6. LOSARTAN POTASSIUM 100 MG [Concomitant]
     Active Substance: LOSARTAN POTASSIUM
     Indication: HYPERTENSION
     Route: 048
     Dates: start: 2000
  7. FISH OIL [Concomitant]
     Active Substance: FISH OIL

REACTIONS (3)
  - Drug ineffective [Unknown]
  - Feeling abnormal [Unknown]
  - Aggression [None]
